FAERS Safety Report 8861829 (Version 2)
Quarter: 2013Q1

REPORT INFORMATION
  Report Type: Spontaneous
  Country: None (occurrence: None)
  Receive Date: 20121024
  Receipt Date: 20121107
  Transmission Date: 20140127
  Serious: Yes (Other)
  Sender: FDA-Public Use
  Company Number: AUR-APL-2012-03020

PATIENT
  Age: 4 Year
  Sex: Male
  Weight: 26.04 kg

DRUGS (2)
  1. CETIRIZINE (CETIRIZINE) [Suspect]
     Indication: POOR QUALITY SLEEP
     Route: 048
     Dates: start: 201206
  2. MELATONIN (MELATONIN) [Suspect]
     Indication: POOR QUALITY SLEEP
     Route: 048
     Dates: start: 201202

REACTIONS (4)
  - Somnolence [None]
  - Somnolence [None]
  - Wrong drug administered [None]
  - Loss of consciousness [None]
